FAERS Safety Report 9926538 (Version 2)
Quarter: 2014Q3

REPORT INFORMATION
  Report Type: Spontaneous
  Country: US (occurrence: US)
  Receive Date: 20140226
  Receipt Date: 20140703
  Transmission Date: 20150326
  Serious: No
  Sender: FDA-Public Use
  Company Number: US-AMGEN-USASP2013073550

PATIENT
  Age: 69 Year
  Sex: Male
  Weight: 79.37 kg

DRUGS (2)
  1. ENBREL [Suspect]
     Active Substance: ETANERCEPT
     Indication: ANKYLOSING SPONDYLITIS
  2. ENBREL [Suspect]
     Active Substance: ETANERCEPT
     Indication: RHEUMATOID ARTHRITIS
     Dosage: 50 MG, QWK
     Route: 058
     Dates: start: 20130930

REACTIONS (5)
  - Malaise [Not Recovered/Not Resolved]
  - Nausea [Unknown]
  - Sleep disorder [Not Recovered/Not Resolved]
  - Fatigue [Not Recovered/Not Resolved]
  - Skin ulcer [Not Recovered/Not Resolved]

NARRATIVE: CASE EVENT DATE: 2013
